FAERS Safety Report 6452269-X (Version None)
Quarter: 2009Q4

REPORT INFORMATION
  Report Type: 
  Country: None (occurrence: None)
  Receive Date: 20091117
  Receipt Date: 20091109
  Transmission Date: 20100525
  Serious: Yes (Other)
  Sender: FDA-Public Use
  Company Number: 2009SP036124

PATIENT
  Sex: Female

DRUGS (1)
  1. DIPROSALIC (BETAMETHASONE DIPROPIONATE/SALICYLIC ACID) (BETAMETHASONE [Suspect]
     Indication: PSORIASIS
     Dosage: CUT

REACTIONS (2)
  - CONDITION AGGRAVATED [None]
  - GLAUCOMA [None]
